FAERS Safety Report 10392097 (Version 4)
Quarter: 2014Q4

REPORT INFORMATION
  Report Type: Report from Study
  Country: US (occurrence: US)
  Receive Date: 20140819
  Receipt Date: 20141021
  Transmission Date: 20150528
  Serious: Yes (Hospitalization, Other)
  Sender: FDA-Public Use
  Company Number: US-BIOGENIDEC-2014BI075902

PATIENT
  Sex: Female

DRUGS (1)
  1. TYSABRI [Suspect]
     Active Substance: NATALIZUMAB
     Indication: MULTIPLE SCLEROSIS
     Route: 042
     Dates: start: 20130412

REACTIONS (8)
  - Seizure [Unknown]
  - Medical induction of coma [Recovered/Resolved]
  - Epilepsy [Recovered/Resolved]
  - Ulcer [Not Recovered/Not Resolved]
  - Arthropod bite [Not Recovered/Not Resolved]
  - Myalgia [Not Recovered/Not Resolved]
  - Gastric ulcer haemorrhage [Unknown]
  - Upper gastrointestinal haemorrhage [Unknown]

NARRATIVE: CASE EVENT DATE: 2013
